FAERS Safety Report 24672040 (Version 1)
Quarter: 2024Q4

REPORT INFORMATION
  Report Type: Spontaneous
  Country: US (occurrence: US)
  Receive Date: 20241127
  Receipt Date: 20241127
  Transmission Date: 20250115
  Serious: Yes (Other)
  Sender: ABBVIE
  Company Number: US-ABBVIE-6011776

PATIENT

DRUGS (1)
  1. LINACLOTIDE [Suspect]
     Active Substance: LINACLOTIDE
     Indication: Product used for unknown indication
     Route: 048

REACTIONS (9)
  - Spinal fusion surgery [Unknown]
  - Abdominal operation [Unknown]
  - Constipation [Unknown]
  - Spinal pain [Unknown]
  - Postoperative adhesion [Unknown]
  - Procedural pain [Unknown]
  - Nerve injury [Unknown]
  - Cauda equina syndrome [Unknown]
  - Weight decreased [Unknown]
